FAERS Safety Report 12630983 (Version 2)
Quarter: 2016Q3

REPORT INFORMATION
  Report Type: Spontaneous
  Country: US (occurrence: US)
  Receive Date: 20160808
  Receipt Date: 20160808
  Transmission Date: 20161109
  Serious: No
  Sender: FDA-Public Use
  Company Number: US-BEH-2015051724

PATIENT
  Age: 11 Month
  Sex: Female
  Weight: 9.1 kg

DRUGS (5)
  1. HIZENTRA [Suspect]
     Active Substance: HUMAN IMMUNOGLOBULIN G
     Indication: IMMUNODEFICIENCY
     Dosage: 1 G AS DIRECTED (1 GM 5 ML VIAL)
     Route: 058
  2. DIPHENHYDRAMINE. [Concomitant]
     Active Substance: DIPHENHYDRAMINE
     Dosage: UD
     Route: 048
  3. EPIPEN [Concomitant]
     Active Substance: EPINEPHRINE
     Dosage: AUTOINJECTOR
     Route: 030
  4. ACETAMINOPHEN. [Concomitant]
     Active Substance: ACETAMINOPHEN
     Dosage: UD
     Route: 048
  5. LMX [Concomitant]
     Active Substance: LIDOCAINE
     Dosage: 4% UD
     Route: 061

REACTIONS (5)
  - Irritability [Unknown]
  - Skin warm [Unknown]
  - Nausea [Unknown]
  - Vomiting [Unknown]
  - Pyrexia [Unknown]

NARRATIVE: CASE EVENT DATE: 20150603
